FAERS Safety Report 19149568 (Version 2)
Quarter: 2021Q3

REPORT INFORMATION
  Report Type: Spontaneous
  Country: GB (occurrence: GB)
  Receive Date: 20210417
  Receipt Date: 20210727
  Transmission Date: 20211014
  Serious: Yes (Other)
  Sender: FDA-Public Use
  Company Number: GB-TILLOMEDPR-2021-EPL-001163

PATIENT
  Age: 48 Year
  Sex: Female

DRUGS (2)
  1. IMRALDI [Suspect]
     Active Substance: ADALIMUMAB
     Indication: RHEUMATOID ARTHRITIS
     Dosage: 40 MILLIGRAM, 1 DOSE PER 2W
     Route: 058
     Dates: start: 20210118
  2. LEFLUNOMIDE. [Suspect]
     Active Substance: LEFLUNOMIDE
     Indication: PAIN
     Dosage: UNKNOWN
     Route: 065

REACTIONS (18)
  - Depression [Unknown]
  - Pain [Unknown]
  - Fatigue [Unknown]
  - Poor quality sleep [Unknown]
  - Decreased appetite [Unknown]
  - Discomfort [Unknown]
  - Wheelchair user [Unknown]
  - Gait disturbance [Unknown]
  - Mycotic allergy [Unknown]
  - Dizziness [Unknown]
  - Blister infected [Unknown]
  - Asthma [Unknown]
  - Type 2 diabetes mellitus [Unknown]
  - Mobility decreased [Unknown]
  - Tearfulness [Unknown]
  - Limb discomfort [Unknown]
  - Oedema [Unknown]
  - Loss of personal independence in daily activities [Unknown]
